FAERS Safety Report 8959244 (Version 1)
Quarter: 2012Q4

REPORT INFORMATION
  Report Type: 
  Country: US (occurrence: US)
  Receive Date: 20121211
  Receipt Date: 20121211
  Transmission Date: 20130627
  Serious: Yes (Life-Threatening)
  Sender: FDA-Public Use
  Company Number: US-B.I. PHARMACEUTICALS,INC./RIDGEFIELD-2012-BI-02536BP

PATIENT
  Sex: Male

DRUGS (3)
  1. PRADAXA [Suspect]
     Indication: ATRIAL FIBRILLATION
  2. BETA BLOCKER [Concomitant]
  3. DILTIAZEM [Concomitant]

REACTIONS (3)
  - Haemorrhage intracranial [Unknown]
  - Head injury [Recovered/Resolved]
  - Road traffic accident [Recovered/Resolved]
